FAERS Safety Report 11989984 (Version 1)
Quarter: 2016Q1

REPORT INFORMATION
  Report Type: Spontaneous
  Country: US (occurrence: US)
  Receive Date: 20160202
  Receipt Date: 20160202
  Transmission Date: 20160526
  Serious: No
  Sender: FDA-Public Use
  Company Number: US-PFIZER INC-2016054811

PATIENT
  Sex: Male

DRUGS (1)
  1. LYRICA [Suspect]
     Active Substance: PREGABALIN
     Indication: SCIATICA
     Dosage: UNK

REACTIONS (6)
  - Epigastric discomfort [Unknown]
  - Dyspnoea [Unknown]
  - Dysphagia [Unknown]
  - Constipation [Unknown]
  - Hypersensitivity [Unknown]
  - Dyspepsia [Not Recovered/Not Resolved]
